FAERS Safety Report 16592315 (Version 1)
Quarter: 2019Q3

REPORT INFORMATION
  Report Type: Spontaneous
  Country: AU (occurrence: AU)
  Receive Date: 20190718
  Receipt Date: 20190718
  Transmission Date: 20191004
  Serious: Yes (Other)
  Sender: FDA-Public Use
  Company Number: AU-MYLANLABS-2019M1067568

PATIENT
  Age: 69 Year
  Sex: Female

DRUGS (3)
  1. MYCOPHENOLATE SODIUM [Suspect]
     Active Substance: MYCOPHENOLATE SODIUM
     Indication: IMMUNOSUPPRESSANT DRUG THERAPY
     Dosage: 360 MILLIGRAM
     Route: 065
  2. ADEFOVIR [Concomitant]
     Active Substance: ADEFOVIR
     Indication: HEPATITIS B
     Route: 065
  3. ENTECAVIR. [Concomitant]
     Active Substance: ENTECAVIR
     Indication: HEPATITIS B
     Route: 065

REACTIONS (5)
  - Neutrophilia [Recovered/Resolved]
  - Skin infection [Recovered/Resolved]
  - Cytomegalovirus infection [Recovered/Resolved]
  - Hypoalbuminaemia [Recovered/Resolved]
  - Lymphopenia [Recovered/Resolved]
